FAERS Safety Report 6989149-7 (Version None)
Quarter: 2010Q3

REPORT INFORMATION
  Report Type: 
  Country: None (occurrence: None)
  Receive Date: 20100916
  Receipt Date: 20091012
  Transmission Date: 20110219
  Serious: Yes (Other)
  Sender: FDA-Public Use
  Company Number: GB-PFIZER INC-2009253742

PATIENT
  Sex: Female
  Weight: 44 kg

DRUGS (2)
  1. PREGABALIN [Suspect]
     Indication: POLYNEUROPATHY ALCOHOLIC
     Dosage: 25 MG, 1X/DAY
     Route: 048
     Dates: start: 20080207
  2. PREGABALIN [Suspect]
     Dosage: 150 MG, 2X/DAY
     Route: 048

REACTIONS (2)
  - DRUG DEPENDENCE [None]
  - WITHDRAWAL SYNDROME [None]
